FAERS Safety Report 6260858-0 (Version None)
Quarter: 2009Q3

REPORT INFORMATION
  Report Type: 
  Country: None (occurrence: None)
  Receive Date: 20090707
  Receipt Date: 20090624
  Transmission Date: 20100115
  Serious: Yes (Death)
  Sender: FDA-Public Use
  Company Number: 1000007054

PATIENT

DRUGS (3)
  1. DINOPROSTONE (DINOPROSTONE) (SUPPOSITORY) [Suspect]
     Dosage: (10 MG), TRANSPLACENTAL
     Route: 064
     Dates: start: 20090501
  2. OXYTOCIN [Concomitant]
  3. MEPERIDINE HCL [Concomitant]

REACTIONS (4)
  - DEATH NEONATAL [None]
  - FOETAL DISTRESS SYNDROME [None]
  - MATERNAL DRUGS AFFECTING FOETUS [None]
  - NEONATAL RESPIRATORY DISTRESS SYNDROME [None]
